FAERS Safety Report 23584437 (Version 14)
Quarter: 2025Q1

REPORT INFORMATION
  Report Type: Report from Study
  Country: CA (occurrence: CA)
  Receive Date: 20240301
  Receipt Date: 20250326
  Transmission Date: 20250408
  Serious: Yes (Other)
  Sender: TAKEDA
  Company Number: CA-TAKEDA-2022TUS061413

PATIENT
  Age: 60 Year
  Sex: Female

DRUGS (53)
  1. LANADELUMAB [Suspect]
     Active Substance: LANADELUMAB
     Indication: Hereditary angioedema with normal C1 esterase inhibitor
     Dosage: 2 DOSAGE FORM, Q2WEEKS
     Dates: start: 20211127
  2. LANADELUMAB [Suspect]
     Active Substance: LANADELUMAB
     Indication: Mast cell activation syndrome
     Dosage: UNK, Q2WEEKS
  3. LANADELUMAB [Suspect]
     Active Substance: LANADELUMAB
     Dosage: 2 DOSAGE FORM, Q2WEEKS
  4. LANADELUMAB [Suspect]
     Active Substance: LANADELUMAB
     Dosage: UNK, Q2WEEKS
  5. LANADELUMAB [Suspect]
     Active Substance: LANADELUMAB
     Dosage: UNK UNK, Q2WEEKS
  6. LANADELUMAB [Suspect]
     Active Substance: LANADELUMAB
     Dosage: UNK, Q2WEEKS
  7. LANADELUMAB [Suspect]
     Active Substance: LANADELUMAB
     Dosage: UNK UNK, Q2WEEKS
  8. CALCIUM CITRATE [Concomitant]
     Active Substance: CALCIUM CITRATE
  9. CORTEF [Concomitant]
     Active Substance: HYDROCORTISONE
     Dosage: 22.5 MILLIGRAM, QD
  10. CORTEF [Concomitant]
     Active Substance: HYDROCORTISONE
     Dosage: 17.5 MILLIGRAM, QD
  11. SOLU-CORTEF [Concomitant]
     Active Substance: HYDROCORTISONE SODIUM SUCCINATE
  12. SPIRONOLACTONE [Concomitant]
     Active Substance: SPIRONOLACTONE
     Dosage: 12.5 MILLIGRAM, BID
  13. MIRABEGRON [Concomitant]
     Active Substance: MIRABEGRON
     Dosage: 50 MILLIGRAM, QD
  14. METOLAZONE [Concomitant]
     Active Substance: METOLAZONE
     Dosage: 2.5 MILLIGRAM, Q72H
  15. METOLAZONE [Concomitant]
     Active Substance: METOLAZONE
  16. DYMISTA [Concomitant]
     Active Substance: AZELASTINE HYDROCHLORIDE\FLUTICASONE PROPIONATE
     Dosage: UNK UNK, BID
  17. FAMOTIDINE [Concomitant]
     Active Substance: FAMOTIDINE
     Dosage: 20 MILLIGRAM, BID
  18. KETOTIFEN [Concomitant]
     Active Substance: KETOTIFEN
     Dosage: 4 MILLIGRAM, BID
  19. Labixten [Concomitant]
     Dosage: 40 MILLIGRAM, BID
  20. LASIX [Concomitant]
     Active Substance: FUROSEMIDE
     Dosage: 40 MILLIGRAM, BID
  21. LASIX [Concomitant]
     Active Substance: FUROSEMIDE
     Dosage: 40 MILLIGRAM, BID
     Dates: start: 202402
  22. BROMAZEPAM [Concomitant]
     Active Substance: BROMAZEPAM
  23. BROMAZEPAM [Concomitant]
     Active Substance: BROMAZEPAM
     Dosage: UNK UNK, QD
  24. CROMOLYN SODIUM [Concomitant]
     Active Substance: CROMOLYN SODIUM
     Dosage: 300 MILLIGRAM, QID
  25. RABEPRAZOLE SODIUM [Concomitant]
     Active Substance: RABEPRAZOLE SODIUM
     Dosage: 20 MILLIGRAM, BID
  26. PLAQUENIL [Concomitant]
     Active Substance: HYDROXYCHLOROQUINE SULFATE
     Dosage: 400 MILLIGRAM, QD
  27. KCL [Concomitant]
     Active Substance: POTASSIUM CHLORIDE
     Dosage: 30 MILLILITER, TID
  28. KCL [Concomitant]
     Active Substance: POTASSIUM CHLORIDE
     Dosage: 45 MILLILITER, TID
  29. SINGULAIR [Concomitant]
     Active Substance: MONTELUKAST SODIUM
     Dosage: 10 MILLIGRAM, BID
  30. XYZAL [Concomitant]
     Active Substance: LEVOCETIRIZINE DIHYDROCHLORIDE
     Dosage: 5 MILLIGRAM, QD
  31. ZYRTEC [Concomitant]
     Active Substance: CETIRIZINE HYDROCHLORIDE
     Dosage: 10 MILLIGRAM, QD
  32. OMEGA 3 [Concomitant]
     Active Substance: CAPSAICIN
  33. OMEGA 3 [Concomitant]
     Active Substance: CAPSAICIN
     Dosage: 3 DOSAGE FORM, QD
  34. PRASTERONE [Concomitant]
     Active Substance: PRASTERONE
     Dosage: 25 MILLIGRAM, QD
  35. FIRAZYR [Concomitant]
     Active Substance: ICATIBANT ACETATE
  36. CELEBREX [Concomitant]
     Active Substance: CELECOXIB
  37. CELEBREX [Concomitant]
     Active Substance: CELECOXIB
     Dosage: 200 MILLIGRAM, QD
  38. AXID [Concomitant]
     Active Substance: NIZATIDINE
     Dosage: 150 MILLIGRAM, BID
  39. CHLORPHENIRAMINE MALEATE [Concomitant]
     Active Substance: CHLORPHENIRAMINE MALEATE
  40. HYDROCORTISONE [Concomitant]
     Active Substance: HYDROCORTISONE
     Dosage: 20 MILLIGRAM, QD
  41. ALDACTONE [Concomitant]
     Active Substance: SPIRONOLACTONE
     Dosage: 12.5 MILLIGRAM, QD
  42. ALDACTONE [Concomitant]
     Active Substance: SPIRONOLACTONE
  43. XOLAIR [Concomitant]
     Active Substance: OMALIZUMAB
  44. XOLAIR [Concomitant]
     Active Substance: OMALIZUMAB
     Dosage: 300 MILLIGRAM, Q4WEEKS
  45. XOLAIR [Concomitant]
     Active Substance: OMALIZUMAB
  46. XOLAIR [Concomitant]
     Active Substance: OMALIZUMAB
     Dosage: 300 MILLIGRAM, Q4WEEKS
  47. XOLAIR [Concomitant]
     Active Substance: OMALIZUMAB
  48. PATADAY [Concomitant]
     Active Substance: OLOPATADINE HYDROCHLORIDE
     Dosage: UNK UNK, QD
  49. I drop pur [Concomitant]
  50. WEGOVY [Concomitant]
     Active Substance: SEMAGLUTIDE
     Dosage: 0.25 MILLIGRAM, 1/WEEK
  51. WEGOVY [Concomitant]
     Active Substance: SEMAGLUTIDE
     Dosage: 1 MILLIGRAM, 1/WEEK
  52. WEGOVY [Concomitant]
     Active Substance: SEMAGLUTIDE
  53. CHLORPHENIRAMINE [Concomitant]
     Active Substance: CHLORPHENIRAMINE

REACTIONS (27)
  - Mast cell activation syndrome [Not Recovered/Not Resolved]
  - Tendon disorder [Not Recovered/Not Resolved]
  - Tenosynovitis [Not Recovered/Not Resolved]
  - Lacrimation increased [Not Recovered/Not Resolved]
  - Dry eye [Not Recovered/Not Resolved]
  - Stress [Unknown]
  - Fatigue [Unknown]
  - Sacroiliitis [Recovering/Resolving]
  - Bronchitis [Not Recovered/Not Resolved]
  - Blood potassium abnormal [Not Recovered/Not Resolved]
  - Dyspnoea [Not Recovered/Not Resolved]
  - Peripheral swelling [Not Recovered/Not Resolved]
  - Pruritus [Not Recovered/Not Resolved]
  - Arthritis [Unknown]
  - Product use issue [Unknown]
  - Insurance issue [Unknown]
  - Pain in extremity [Unknown]
  - Fluid retention [Unknown]
  - Swelling [Recovering/Resolving]
  - Inflammation [Recovering/Resolving]
  - Sinusitis [Unknown]
  - Lower respiratory tract infection [Unknown]
  - Carpal tunnel syndrome [Unknown]
  - Malaise [Unknown]
  - Hereditary angioedema [Recovered/Resolved]
  - Off label use [Unknown]
  - Inappropriate schedule of product administration [Unknown]

NARRATIVE: CASE EVENT DATE: 20211127
